FAERS Safety Report 21101236 (Version 6)
Quarter: 2022Q4

REPORT INFORMATION
  Report Type: Report from Study
  Country: CA (occurrence: CA)
  Receive Date: 20220719
  Receipt Date: 20221122
  Transmission Date: 20230112
  Serious: Yes (Other)
  Sender: FDA-Public Use
  Company Number: CA-TAKEDA-2022TUS046569

PATIENT
  Age: 49 Year
  Sex: Male

DRUGS (6)
  1. VEDOLIZUMAB [Suspect]
     Active Substance: VEDOLIZUMAB
     Indication: Colitis ulcerative
     Dosage: 300 MILLIGRAM
     Route: 042
     Dates: start: 20220527
  2. VEDOLIZUMAB [Suspect]
     Active Substance: VEDOLIZUMAB
     Indication: Crohn^s disease
     Dosage: 300 MILLIGRAM, Q4WEEKS
     Route: 042
     Dates: start: 20220811
  3. PREDNISONE [Concomitant]
     Active Substance: PREDNISONE
     Dosage: 40 MILLIGRAM
     Dates: start: 20220503
  4. IMURAN [Concomitant]
     Active Substance: AZATHIOPRINE
     Dosage: 3.5 GRAM, QD
     Dates: start: 2016
  5. Salofalk [Concomitant]
     Dosage: UNK
     Dates: start: 2006
  6. CORTISONE [Concomitant]
     Active Substance: CORTISONE
     Dosage: UNK UNK, QD

REACTIONS (8)
  - Haematochezia [Not Recovered/Not Resolved]
  - Mucous stools [Unknown]
  - Abdominal pain upper [Unknown]
  - Flatulence [Unknown]
  - Pyrexia [Unknown]
  - Abdominal pain [Unknown]
  - Drug ineffective [Unknown]
  - Off label use [Unknown]

NARRATIVE: CASE EVENT DATE: 20220811
